FAERS Safety Report 23160170 (Version 1)
Quarter: 2023Q4

REPORT INFORMATION
  Report Type: Report from Study
  Country: US (occurrence: US)
  Receive Date: 20231108
  Receipt Date: 20231108
  Transmission Date: 20240110
  Serious: Yes (Hospitalization)
  Sender: FDA-Public Use
  Company Number: US-IMMUNOCORE, LTD-2023-IMC-001958

PATIENT
  Age: 83 Year
  Sex: Male

DRUGS (1)
  1. KIMMTRAK [Suspect]
     Active Substance: TEBENTAFUSP-TEBN
     Indication: Metastatic ocular melanoma
     Dosage: UNK, SINGLE, DOSE 1

REACTIONS (3)
  - Confusional state [Unknown]
  - Electrolyte imbalance [Unknown]
  - Dehydration [Unknown]

NARRATIVE: CASE EVENT DATE: 20231025
